FAERS Safety Report 10248831 (Version 2)
Quarter: 2014Q2

REPORT INFORMATION
  Report Type: Report from Study
  Country: SG (occurrence: SG)
  Receive Date: 20140620
  Receipt Date: 20140620
  Transmission Date: 20141212
  Serious: Yes (Hospitalization)
  Sender: FDA-Public Use
  Company Number: PHHO2012SG005511

PATIENT
  Age: 48 Year
  Sex: Male
  Weight: 62.5 kg

DRUGS (1)
  1. LDK378 [Suspect]
     Indication: NON-SMALL CELL LUNG CANCER
     Dosage: 600 MG, QD
     Route: 048
     Dates: start: 20120327, end: 20130107

REACTIONS (3)
  - Vomiting [Recovering/Resolving]
  - Depressed level of consciousness [Not Recovered/Not Resolved]
  - Hyponatraemia [Recovered/Resolved]
